FAERS Safety Report 4625539-5 (Version None)
Quarter: 2005Q2

REPORT INFORMATION
  Report Type: 
  Country: None (occurrence: None)
  Receive Date: 20050401
  Receipt Date: 20040915
  Transmission Date: 20051028
  Serious: Yes (Hospitalization)
  Sender: FDA-Public Use
  Company Number: JP-MERCK-0409USA01394

PATIENT
  Age: 88 Year
  Sex: Male

DRUGS (3)
  1. FOSAMAX [Suspect]
     Indication: OSTEOPOROSIS
     Route: 048
     Dates: start: 20040302, end: 20040824
  2. VOLTAREN [Suspect]
     Indication: OSTEOPOROSIS
     Route: 048
     Dates: start: 20040224, end: 20040824
  3. LASIX [Concomitant]
     Route: 065
     Dates: start: 20040622

REACTIONS (7)
  - BACK PAIN [None]
  - NASOPHARYNGITIS [None]
  - OEDEMA PERIPHERAL [None]
  - PLATELET COUNT DECREASED [None]
  - PYREXIA [None]
  - SMALL INTESTINAL ULCER HAEMORRHAGE [None]
  - WEIGHT DECREASED [None]
